FAERS Safety Report 10464594 (Version 1)
Quarter: 2014Q3

REPORT INFORMATION
  Report Type: Spontaneous
  Country: US (occurrence: US)
  Receive Date: 20140919
  Receipt Date: 20140919
  Transmission Date: 20150326
  Serious: Yes (Hospitalization)
  Sender: FDA-Public Use
  Company Number: US-PERRIGO-14US009001

PATIENT
  Age: 30 Year
  Sex: Male

DRUGS (4)
  1. CLINDAMYCIN PALMITATE HYDROCHLORIDE RX 15 MG/ML 3G2 [Suspect]
     Active Substance: CLINDAMYCIN PALMITATE HYDROCHLORIDE
     Indication: JOINT INJURY
     Dosage: UNKNOWN, UNKNOWN
     Route: 048
  2. NAPROXEN SODIUM 220 MG 368 [Suspect]
     Active Substance: NAPROXEN SODIUM
     Indication: JOINT INJURY
     Dosage: UNKNOWN, UNKNOWN
     Route: 048
  3. TUMS                               /00193601/ [Suspect]
     Active Substance: CALCIUM CARBONATE\MAGNESIUM CARBONATE\MAGNESIUM TRISILICATE
     Indication: GASTROOESOPHAGEAL REFLUX DISEASE
     Dosage: 7 G, QD
     Route: 048
  4. TUMS                               /00193601/ [Suspect]
     Active Substance: CALCIUM CARBONATE\MAGNESIUM CARBONATE\MAGNESIUM TRISILICATE
     Dosage: 14 G, QD
     Route: 048

REACTIONS (15)
  - Milk-alkali syndrome [Unknown]
  - Nausea [Unknown]
  - Constipation [Unknown]
  - Proteinuria [None]
  - Hypophagia [None]
  - Thirst [Unknown]
  - Decreased appetite [Unknown]
  - Liver injury [None]
  - Dyspepsia [Unknown]
  - Hypercalcaemia [Unknown]
  - Normochromic normocytic anaemia [None]
  - Renal failure [Unknown]
  - Hypovolaemia [Unknown]
  - Vomiting [Unknown]
  - Irritability [Unknown]
